FAERS Safety Report 5337362-7 (Version None)
Quarter: 2007Q2

REPORT INFORMATION
  Report Type: 
  Country: None (occurrence: None)
  Receive Date: 20070529
  Receipt Date: 20070518
  Transmission Date: 20071010
  Serious: Yes (Other)
  Sender: FDA-Public Use
  Company Number: US-PFIZER INC-2007040720

PATIENT

DRUGS (1)
  1. LIPITOR [Suspect]

REACTIONS (2)
  - MOVEMENT DISORDER [None]
  - MYALGIA [None]
